FAERS Safety Report 20792042 (Version 2)
Quarter: 2022Q2

REPORT INFORMATION
  Report Type: Spontaneous
  Country: IT (occurrence: IT)
  Receive Date: 20220505
  Receipt Date: 20220519
  Transmission Date: 20220721
  Serious: Yes (Other)
  Sender: FDA-Public Use
  Company Number: IT-TEVA-2022-IT-2033163

PATIENT
  Age: 65 Year
  Sex: Male

DRUGS (8)
  1. CARBOPLATIN [Suspect]
     Active Substance: CARBOPLATIN
     Indication: Oropharyngeal squamous cell carcinoma
     Dosage: AREA UNDER CURVE 4, FOR 2 CYCLES
     Route: 065
     Dates: start: 2018, end: 2018
  2. CARBOPLATIN [Suspect]
     Active Substance: CARBOPLATIN
     Indication: Oropharyngeal squamous cell carcinoma
  3. FLUOROURACIL [Suspect]
     Active Substance: FLUOROURACIL
     Indication: Oropharyngeal squamous cell carcinoma
     Dosage: IN 120H EVERY 3 WEEKS FOR 2 CYCLES
     Route: 065
     Dates: start: 2018, end: 2018
  4. FLUOROURACIL [Suspect]
     Active Substance: FLUOROURACIL
     Indication: Oropharyngeal squamous cell carcinoma
  5. PACLITAXEL [Suspect]
     Active Substance: PACLITAXEL
     Indication: Oropharyngeal squamous cell carcinoma
     Dosage: MAINTAINED FOR NEARLY 2 YEARS, TOTAL 39 CYCLES
     Route: 065
     Dates: start: 201912, end: 2021
  6. PACLITAXEL [Suspect]
     Active Substance: PACLITAXEL
     Indication: Oropharyngeal squamous cell carcinoma
  7. CETUXIMAB [Suspect]
     Active Substance: CETUXIMAB
     Indication: Oropharyngeal squamous cell carcinoma
     Dosage: LOADING DOSE
     Route: 065
     Dates: start: 201808
  8. CETUXIMAB [Suspect]
     Active Substance: CETUXIMAB
     Indication: Oropharyngeal squamous cell carcinoma
     Dosage: FOR 7 CYCLES
     Route: 065
     Dates: start: 2018, end: 2018

REACTIONS (5)
  - Neutropenia [Unknown]
  - Skin toxicity [Unknown]
  - Major depression [Unknown]
  - Impaired quality of life [Unknown]
  - Anaemia [Unknown]

NARRATIVE: CASE EVENT DATE: 20180101
